FAERS Safety Report 5447890-1 (Version None)
Quarter: 2007Q3

REPORT INFORMATION
  Report Type: 
  Country: None (occurrence: None)
  Receive Date: 20070910
  Receipt Date: 20070829
  Transmission Date: 20080115
  Serious: Yes (Other)
  Sender: FDA-Public Use
  Company Number: SE-PFIZER INC-2007074032

PATIENT
  Sex: Female

DRUGS (2)
  1. ZELDOX (CAPSULES) [Suspect]
     Dosage: DAILY DOSE:60MG
  2. PAROXETINE HYDROCHLORIDE [Concomitant]

REACTIONS (3)
  - NEPHROLITHIASIS [None]
  - RENAL HAEMORRHAGE [None]
  - WEIGHT INCREASED [None]
